FAERS Safety Report 5493371-9 (Version None)
Quarter: 2007Q4

REPORT INFORMATION
  Report Type: 
  Country: None (occurrence: None)
  Receive Date: 20071023
  Receipt Date: 20071016
  Transmission Date: 20080405
  Serious: Yes (Hospitalization)
  Sender: FDA-Public Use
  Company Number: US-ABBOTT-07P-163-0420846-00

PATIENT
  Sex: Male
  Weight: 115 kg

DRUGS (7)
  1. HUMIRA [Suspect]
     Indication: PSORIASIS
     Route: 058
     Dates: start: 20060601, end: 20060901
  2. HUMIRA [Suspect]
     Indication: PSORIATIC ARTHROPATHY
  3. WARFARIN SODIUM [Concomitant]
     Indication: THROMBOSIS
     Route: 048
  4. FUROSEMIDE [Concomitant]
     Indication: DIURETIC THERAPY
     Route: 048
  5. TERAZOSIN HCL [Concomitant]
     Indication: DYSURIA
     Route: 048
  6. OMEPRAZOLE [Concomitant]
     Indication: DYSPEPSIA
     Route: 048
  7. IRON [Concomitant]
     Indication: MINERAL SUPPLEMENTATION
     Route: 048

REACTIONS (7)
  - BLOOD URINE PRESENT [None]
  - FUNGAL INFECTION [None]
  - MEDICAL DEVICE COMPLICATION [None]
  - NEPHROLITHIASIS [None]
  - RENAL PAIN [None]
  - STAPHYLOCOCCAL INFECTION [None]
  - URINARY TRACT INFECTION [None]
